FAERS Safety Report 6608693-5 (Version None)
Quarter: 2010Q1

REPORT INFORMATION
  Report Type: 
  Country: None (occurrence: None)
  Receive Date: 20100224
  Receipt Date: 20100224
  Transmission Date: 20100710
  Serious: No
  Sender: FDA-Public Use
  Company Number: None

PATIENT
  Age: 30 Year
  Sex: Male
  Weight: 92.0802 kg

DRUGS (13)
  1. PIOGLITAZONE [Suspect]
     Dosage: 15MG PO
     Route: 048
  2. HUMALOG [Concomitant]
  3. LANGUS [Concomitant]
  4. ASPIRIN [Concomitant]
  5. HYDROCHLOROTHIAZIDE [Concomitant]
  6. ZYDIS [Concomitant]
  7. LORAZEPAM [Concomitant]
  8. DIPHENHYDRAMINE HCL [Concomitant]
  9. TRAZODONE HCL [Concomitant]
  10. BENZTROPINE MESYLATE [Concomitant]
  11. RANITIDINE [Concomitant]
  12. ESKALITH [Concomitant]
  13. HALDOL DEC [Concomitant]

REACTIONS (1)
  - LIVER FUNCTION TEST ABNORMAL [None]
